FAERS Safety Report 18517309 (Version 1)
Quarter: 2020Q4

REPORT INFORMATION
  Report Type: Spontaneous
  Country: US (occurrence: US)
  Receive Date: 20201118
  Receipt Date: 20201118
  Transmission Date: 20210114
  Serious: Yes (Death)
  Sender: FDA-Public Use
  Company Number: None

PATIENT
  Age: 63 Year
  Sex: Male

DRUGS (3)
  1. SPIRONOLACTONE. [Suspect]
     Active Substance: SPIRONOLACTONE
  2. FUROSEMIDE. [Suspect]
     Active Substance: FUROSEMIDE
  3. NAPROXEN. [Suspect]
     Active Substance: NAPROXEN

REACTIONS (4)
  - Sepsis [None]
  - Cardiac arrest [None]
  - Hepatic cirrhosis [None]
  - Acute kidney injury [None]

NARRATIVE: CASE EVENT DATE: 20200611
